FAERS Safety Report 17298422 (Version 3)
Quarter: 2023Q4

REPORT INFORMATION
  Report Type: Spontaneous
  Country: NL (occurrence: NL)
  Receive Date: 20200121
  Receipt Date: 20231115
  Transmission Date: 20240110
  Serious: Yes (Disabling, Other)
  Sender: FDA-Public Use
  Company Number: NL-SEPTODONT-201905672

PATIENT
  Age: 40 Year
  Sex: Male
  Weight: 103 kg

DRUGS (3)
  1. ARTICAINE HYDROCHLORIDE\EPINEPHRINE BITARTRATE [Suspect]
     Active Substance: ARTICAINE HYDROCHLORIDE\EPINEPHRINE BITARTRATE
     Indication: Dental local anaesthesia
     Dosage: 2 DF UPPER JAW + 1.5 DF LOWER JAW BY NERVE BLOCK INTO HEATHLY SITE
     Route: 004
     Dates: start: 20191113
  2. ARTICAINE HYDROCHLORIDE\EPINEPHRINE BITARTRATE [Suspect]
     Active Substance: ARTICAINE HYDROCHLORIDE\EPINEPHRINE BITARTRATE
     Indication: Dental local anaesthesia
     Dosage: 2 DF UPPER JAW + 1.5 DF LOWER JAW BY NERVE BLOCK INTO HEATHLY SITE
     Route: 004
     Dates: start: 20191120
  3. CHLORHEXIDINE [Concomitant]
     Active Substance: CHLORHEXIDINE\CHLORHEXIDINE GLUCONATE
     Indication: Product used for unknown indication
     Dosage: UNK

REACTIONS (10)
  - Sensory disturbance [Recovered/Resolved]
  - Ageusia [Not Recovered/Not Resolved]
  - Tongue paralysis [Recovering/Resolving]
  - Tongue movement disturbance [Recovering/Resolving]
  - Paraesthesia [Not Recovered/Not Resolved]
  - Hypoaesthesia [Recovering/Resolving]
  - Burning sensation [Recovering/Resolving]
  - Accidental exposure to product [Unknown]
  - Hypoaesthesia oral [Not Recovered/Not Resolved]
  - Thermohypoaesthesia [Not Recovered/Not Resolved]

NARRATIVE: CASE EVENT DATE: 20191113
